FAERS Safety Report 17379141 (Version 3)
Quarter: 2020Q1

REPORT INFORMATION
  Report Type: Report from Study
  Country: JP (occurrence: JP)
  Receive Date: 20200206
  Receipt Date: 20200312
  Transmission Date: 20200409
  Serious: Yes (Life-Threatening, Hospitalization, Other)
  Sender: FDA-Public Use
  Company Number: JP-JNJFOC-20200201912

PATIENT
  Age: 65 Year
  Sex: Male

DRUGS (24)
  1. OLAPARIB. [Suspect]
     Active Substance: OLAPARIB
     Dosage: 2 TIMES A DAY
     Route: 048
     Dates: start: 20190801, end: 20190823
  2. OLAPARIB. [Suspect]
     Active Substance: OLAPARIB
     Dosage: 2 TIMES A DAY
     Route: 048
     Dates: start: 20190716, end: 20190716
  3. OLAPARIB. [Suspect]
     Active Substance: OLAPARIB
     Dosage: 2 TIMES A DAY
     Route: 048
     Dates: start: 20191216, end: 20191216
  4. PREDNISONE. [Suspect]
     Active Substance: PREDNISONE
     Route: 048
     Dates: start: 20200126, end: 20200202
  5. OLAPARIB. [Suspect]
     Active Substance: OLAPARIB
     Route: 048
     Dates: start: 20190605, end: 20190701
  6. SENNOSIDE A+B [Concomitant]
     Active Substance: SENNOSIDES A AND B
     Indication: CONSTIPATION
     Dosage: AS REQUIRED
     Route: 048
     Dates: start: 20180929
  7. ABIRATERONE ACETATE. [Suspect]
     Active Substance: ABIRATERONE ACETATE
     Indication: HORMONE-REFRACTORY PROSTATE CANCER
     Route: 048
     Dates: start: 20190604
  8. OLAPARIB. [Suspect]
     Active Substance: OLAPARIB
     Dosage: 2 TIMES A DAY
     Route: 048
     Dates: start: 20190708, end: 20190718
  9. OLAPARIB. [Suspect]
     Active Substance: OLAPARIB
     Dosage: 2 TIMES A DAY
     Route: 048
     Dates: start: 20190731, end: 20190731
  10. DEGARELIX ACETATE [Suspect]
     Active Substance: DEGARELIX ACETATE
     Indication: PROSTATE CANCER
     Dosage: QM
     Route: 058
     Dates: start: 20190108, end: 20200126
  11. SILODOSIN. [Concomitant]
     Active Substance: SILODOSIN
     Indication: BENIGN PROSTATIC HYPERPLASIA
     Route: 048
     Dates: start: 20180923
  12. GLYCOL SALICYLATE [Concomitant]
     Active Substance: GLYCOL SALICYLATE
     Indication: MUSCLE FATIGUE
     Dosage: AS REQUIRED
     Route: 061
  13. NONIVAMIDE. [Concomitant]
     Active Substance: NONIVAMIDE
     Indication: MUSCLE FATIGUE
     Dosage: AS REQUIRED
     Route: 061
  14. OLAPARIB. [Suspect]
     Active Substance: OLAPARIB
     Indication: HORMONE-REFRACTORY PROSTATE CANCER
     Dosage: 2 TIMES A DAY
     Route: 048
     Dates: start: 20190604, end: 20190604
  15. OLAPARIB. [Suspect]
     Active Substance: OLAPARIB
     Dosage: 2 TIMES A DAY
     Route: 048
     Dates: start: 20190709, end: 20190715
  16. OLAPARIB. [Suspect]
     Active Substance: OLAPARIB
     Dosage: 2 TIMES A DAY
     Route: 048
     Dates: start: 20190827, end: 20200113
  17. PREDNISONE. [Suspect]
     Active Substance: PREDNISONE
     Indication: HORMONE-REFRACTORY PROSTATE CANCER
     Route: 048
     Dates: start: 20190604, end: 20200126
  18. ABIRATERONE ACETATE. [Suspect]
     Active Substance: ABIRATERONE ACETATE
     Route: 048
     Dates: end: 20200124
  19. OLAPARIB. [Suspect]
     Active Substance: OLAPARIB
     Dosage: 2 TIMES A DAY
     Route: 048
     Dates: start: 20190702, end: 20190707
  20. OLAPARIB. [Suspect]
     Active Substance: OLAPARIB
     Dosage: 2 TIMES A DAY
     Route: 048
     Dates: start: 20190801, end: 20190827
  21. OLAPARIB. [Suspect]
     Active Substance: OLAPARIB
     Dosage: 2 TIMES A DAY
     Route: 048
     Dates: start: 20191217, end: 20200113
  22. OLAPARIB. [Suspect]
     Active Substance: OLAPARIB
     Dosage: 2 TIMES A DAY
     Route: 048
     Dates: start: 20200114, end: 20200114
  23. NICOTINIC ACID [Concomitant]
     Active Substance: NIACIN
     Indication: MUSCLE FATIGUE
     Dosage: AS REQUIRED
     Route: 061
  24. CHLORPHENIRAMINE MALEATE. [Concomitant]
     Active Substance: CHLORPHENIRAMINE MALEATE
     Indication: MUSCLE FATIGUE
     Dosage: AS REQUIRED
     Route: 061

REACTIONS (1)
  - Acute myocardial infarction [Not Recovered/Not Resolved]

NARRATIVE: CASE EVENT DATE: 20200126
